FAERS Safety Report 14867822 (Version 1)
Quarter: 2018Q2

REPORT INFORMATION
  Report Type: Spontaneous
  Country: US (occurrence: US)
  Receive Date: 20180509
  Receipt Date: 20180509
  Transmission Date: 20180711
  Serious: No
  Sender: FDA-Public Use
  Company Number: PHEH2018US017621

PATIENT
  Age: 59 Year
  Sex: Male

DRUGS (2)
  1. MEKINIST [Suspect]
     Active Substance: TRAMETINIB DIMETHYL SULFOXIDE
     Indication: DEMYELINATION
     Dosage: 1 DF, QD
     Route: 048
     Dates: start: 20171108, end: 20180315
  2. TAFINLAR [Suspect]
     Active Substance: DABRAFENIB MESYLATE
     Indication: DEMYELINATION
     Dosage: 1 DF, Q12H
     Route: 048
     Dates: start: 20171108, end: 20180315

REACTIONS (3)
  - Pyrexia [Unknown]
  - Swelling face [Unknown]
  - Product use in unapproved indication [Unknown]

NARRATIVE: CASE EVENT DATE: 20180315
